FAERS Safety Report 17328789 (Version 1)
Quarter: 2020Q1

REPORT INFORMATION
  Report Type: Spontaneous
  Country: AU (occurrence: AU)
  Receive Date: 20200110
  Receipt Date: 20200110
  Transmission Date: 20200409
  Serious: Yes (Hospitalization)
  Sender: FDA-Public Use
  Company Number: None

PATIENT
  Age: 64 Year
  Sex: Male
  Weight: 109.77 kg

DRUGS (1)
  1. EMPAGLIFLOZIN (EMPAGLIFLOZIN 10MG TAB) [Suspect]
     Active Substance: EMPAGLIFLOZIN
     Indication: DIABETES MELLITUS
     Route: 048
     Dates: start: 20190118, end: 20190320

REACTIONS (7)
  - Urinary tract infection fungal [None]
  - Abdominal pain [None]
  - Acute kidney injury [None]
  - Asthenia [None]
  - Hypotension [None]
  - Sepsis [None]
  - Nausea [None]

NARRATIVE: CASE EVENT DATE: 20190320
